FAERS Safety Report 9448517 (Version 2)
Quarter: 2013Q4

REPORT INFORMATION
  Report Type: Spontaneous
  Country: GB (occurrence: GB)
  Receive Date: 20130808
  Receipt Date: 20131001
  Transmission Date: 20140711
  Serious: Yes (Other)
  Sender: FDA-Public Use
  Company Number: GB-009507513-1307GBR016837

PATIENT
  Sex: 0

DRUGS (2)
  1. BRIDION [Suspect]
     Indication: ANAESTHESIA REVERSAL
     Route: 042
  2. ANESTHETIC (UNSPECIFIED) [Concomitant]

REACTIONS (1)
  - Laryngospasm [Recovered/Resolved]
